FAERS Safety Report 4625645-5 (Version None)
Quarter: 2005Q1

REPORT INFORMATION
  Report Type: 
  Country: None (occurrence: None)
  Receive Date: 20050330
  Receipt Date: 20050310
  Transmission Date: 20050727
  Serious: Yes (Other)
  Sender: FDA-Public Use
  Company Number: GBS050216696

PATIENT
  Age: 12 Year
  Sex: Female
  Weight: 55 kg

DRUGS (1)
  1. STRATTERA [Suspect]
     Dosage: 40 MG DAY
     Dates: start: 20041117

REACTIONS (4)
  - AGITATION [None]
  - COPROLALIA [None]
  - INAPPROPRIATE AFFECT [None]
  - MANIA [None]
